FAERS Safety Report 10417017 (Version 3)
Quarter: 2015Q1

REPORT INFORMATION
  Report Type: Spontaneous
  Country: US (occurrence: US)
  Receive Date: 20140828
  Receipt Date: 20150217
  Transmission Date: 20150720
  Serious: No
  Sender: FDA-Public Use
  Company Number: US-PFIZER INC-2014235596

PATIENT
  Sex: Female

DRUGS (1)
  1. DRUG, UNSPECIFIED [Suspect]
     Active Substance: UNSPECIFIED INGREDIENT

REACTIONS (1)
  - Drug hypersensitivity [Unknown]
